FAERS Safety Report 9875305 (Version 1)
Quarter: 2014Q1

REPORT INFORMATION
  Report Type: Other
  Country: US (occurrence: US)
  Receive Date: 20140206
  Receipt Date: 20140206
  Transmission Date: 20141002
  Serious: No
  Sender: FDA-Public Use
  Company Number: US-ACORDA-ACO_37943_2013

PATIENT
  Age: 56 Year
  Sex: Female
  Weight: 82.54 kg

DRUGS (8)
  1. AMPYRA [Suspect]
     Indication: GAIT DISTURBANCE
     Dosage: 10 MG, BID
     Route: 048
     Dates: start: 201307, end: 2013
  2. AMPYRA [Suspect]
     Dosage: 10 MG, QD
     Route: 048
     Dates: start: 2013
  3. LEVOXYL [Concomitant]
     Indication: PRODUCT USED FOR UNKNOWN INDICATION
     Dosage: 0.075 MG, UNK
     Route: 065
  4. TIMOLOL [Concomitant]
     Indication: EYE DISORDER
     Dosage: UNK
  5. AVONEX [Concomitant]
     Indication: PRODUCT USED FOR UNKNOWN INDICATION
     Dosage: UNK
     Route: 065
     Dates: start: 200909
  6. ALEVE [Concomitant]
     Indication: PRODUCT USED FOR UNKNOWN INDICATION
     Dosage: UNK
     Route: 065
  7. TYLENOL [Concomitant]
     Indication: PRODUCT USED FOR UNKNOWN INDICATION
     Dosage: UNK
     Route: 065
  8. VITAMINS NOS [Concomitant]
     Indication: PRODUCT USED FOR UNKNOWN INDICATION
     Dosage: UNK
     Route: 065

REACTIONS (3)
  - Heart rate increased [Unknown]
  - Anxiety [Not Recovered/Not Resolved]
  - Headache [Recovered/Resolved]
